FAERS Safety Report 9201670 (Version 2)
Quarter: 2013Q2

REPORT INFORMATION
  Report Type: Spontaneous
  Country: MA (occurrence: None)
  Receive Date: 20130327
  Receipt Date: 20130405
  Transmission Date: 20140414
  Serious: Yes (Other)
  Sender: FDA-Public Use
  Company Number: PNIS20130003

PATIENT
  Age: 43 Year
  Sex: Female

DRUGS (7)
  1. PREDNISOLONE ORAL SOLUTION (PREDNISOLONE) (UNKNOWN) [Suspect]
     Indication: IMMUNOSUPPRESSANT DRUG THERAPY
     Route: 048
  2. METHYLPREDNISOLONE [Suspect]
     Indication: IMMUNOSUPPRESSANT DRUG THERAPY
  3. AMLODIPINE BESYLATE TABLETS (AMLODIPINE BESILATE) (UNKNOWN) (AMLODIPINE BESILATE) [Concomitant]
  4. VITAMIN D3 (COLECALCIFEROL) (UNKNOWN) (COLECALCIFEROL) [Concomitant]
  5. PROTON PUMP INHIBITORS (PROTON PUMP INHIBITORS) (UNKNOWN) [Concomitant]
  6. CYCLOPHOSPHAMIDE (CYCLOPHOSPHAMIDE) (UNKNOWN) (CYCLOPHOSPHAMIDE) [Concomitant]
  7. DIURETICS (DIURETICS) (UNKNOWN) [Concomitant]

REACTIONS (4)
  - Scleroderma renal crisis [None]
  - Haemodialysis [None]
  - Blood pressure increased [None]
  - Renal impairment [None]
